FAERS Safety Report 24806918 (Version 1)
Quarter: 2025Q1

REPORT INFORMATION
  Report Type: Spontaneous
  Country: US (occurrence: US)
  Receive Date: 20250104
  Receipt Date: 20250104
  Transmission Date: 20250408
  Serious: No
  Sender: DAIICHI
  Company Number: US-DAIICHI SANKYO, INC.-DS-2025-117923-USAA

PATIENT
  Age: 56 Year
  Sex: Female

DRUGS (2)
  1. TRASTUZUMAB DERUXTECAN [Suspect]
     Active Substance: TRASTUZUMAB DERUXTECAN
     Indication: HER2 negative breast cancer
     Route: 065
  2. TRASTUZUMAB DERUXTECAN [Suspect]
     Active Substance: TRASTUZUMAB DERUXTECAN
     Route: 065

REACTIONS (2)
  - Paraesthesia [Recovered/Resolved]
  - Axonal neuropathy [Recovered/Resolved]
